FAERS Safety Report 21692623 (Version 1)
Quarter: 2022Q4

REPORT INFORMATION
  Report Type: Other
  Country: DE (occurrence: None)
  Receive Date: 20221207
  Receipt Date: 20221207
  Transmission Date: 20230113
  Serious: No
  Sender: FDA-Public Use
  Company Number: DE-ROCHE-2676090

PATIENT
  Age: 37 Year
  Sex: Female
  Weight: 61 kg

DRUGS (11)
  1. OCRELIZUMAB [Suspect]
     Active Substance: OCRELIZUMAB
     Indication: Relapsing multiple sclerosis
     Route: 042
     Dates: start: 20180625, end: 20180709
  2. OCRELIZUMAB [Suspect]
     Active Substance: OCRELIZUMAB
     Route: 042
     Dates: start: 20190212, end: 20190212
  3. OCRELIZUMAB [Suspect]
     Active Substance: OCRELIZUMAB
     Route: 042
     Dates: start: 20190812, end: 20190812
  4. OCRELIZUMAB [Suspect]
     Active Substance: OCRELIZUMAB
     Route: 042
     Dates: start: 20200309, end: 20200309
  5. DIMETHINDENE [Concomitant]
     Active Substance: DIMETHINDENE
     Indication: Prophylaxis
     Route: 048
     Dates: start: 20180709, end: 20180709
  6. DIMETHINDENE [Concomitant]
     Active Substance: DIMETHINDENE
     Route: 048
     Dates: start: 20180625, end: 20180625
  7. DIMETHINDENE [Concomitant]
     Active Substance: DIMETHINDENE
     Route: 048
     Dates: start: 20200908, end: 20200908
  8. METHYLPREDNISOLONE [Concomitant]
     Active Substance: METHYLPREDNISOLONE
     Indication: Prophylaxis
     Route: 042
     Dates: start: 20200908, end: 20200908
  9. METHYLPREDNISOLONE [Concomitant]
     Active Substance: METHYLPREDNISOLONE
     Route: 017
     Dates: start: 20180709, end: 20180709
  10. METHYLPREDNISOLONE [Concomitant]
     Active Substance: METHYLPREDNISOLONE
     Route: 017
     Dates: start: 20180625, end: 20180625
  11. CHOLECALCIFEROL [Concomitant]
     Active Substance: CHOLECALCIFEROL
     Indication: Vitamin D deficiency
     Route: 048
     Dates: start: 20161124

REACTIONS (4)
  - Bronchitis [Recovered/Resolved]
  - Nasopharyngitis [Recovered/Resolved]
  - Coronavirus infection [Recovered/Resolved]
  - Bacterial infection [Recovered/Resolved]

NARRATIVE: CASE EVENT DATE: 20200320
